FAERS Safety Report 26149673 (Version 4)
Quarter: 2025Q4

REPORT INFORMATION
  Report Type: Report from Study
  Country: CA (occurrence: CA)
  Receive Date: 20251212
  Receipt Date: 20251231
  Transmission Date: 20260117
  Serious: Yes (Life-Threatening, Hospitalization, Other)
  Sender: SANOFI AVENTIS
  Company Number: CA-SA-2025SA364246

PATIENT
  Age: 70 Year
  Sex: Female
  Weight: 57.6 kg

DRUGS (22)
  1. AGALSIDASE BETA [Suspect]
     Active Substance: AGALSIDASE BETA
     Indication: Fabry^s disease
     Dosage: 55MG, QOW
     Route: 041
     Dates: start: 20060101, end: 20251120
  2. NITROGLYCERIN [Concomitant]
     Active Substance: NITROGLYCERIN
     Dosage: 0.2 MG, QD
  3. NITROGLYCERIN [Concomitant]
     Active Substance: NITROGLYCERIN
     Dosage: 0.4 MG, QD PLACE 1 PATCH ON THE SKIN ONE (1) TIME PER DAY FOR 30 DAYS. PATCH ON AT 2000 AND REMOVE P
  4. NITROGLYCERIN [Concomitant]
     Active Substance: NITROGLYCERIN
     Dosage: 0.4 MG, TRANSLINGUAL
  5. APIXABAN [Concomitant]
     Active Substance: APIXABAN
     Dosage: TAKE 1 TABLET (5 MG TOTAL) BY MOUTH TWO (2) TIMES PER DAY FOR 90 DAYS
     Route: 048
  6. ATORVASTATIN [Concomitant]
     Active Substance: ATORVASTATIN
  7. DAPAGLIFLOZIN [Concomitant]
     Active Substance: DAPAGLIFLOZIN
     Dosage: TAKE 0.5 TABLETS (5 MG TOTAL) BY MOUTH ONE (1) TIME PER DAY FOR 365 DAYS
     Route: 048
  8. KEPPRA [Concomitant]
     Active Substance: LEVETIRACETAM
     Indication: Seizure
     Dosage: TAKE 2 TABLETS (1000MG TOTAL) BY MOUTH TWO (2) TIMES PER DAY FOR 180 DAYS
     Route: 048
  9. METFORMIN [Concomitant]
     Active Substance: METFORMIN HYDROCHLORIDE
  10. REPLAGAL [Concomitant]
     Active Substance: AGALSIDASE ALFA
     Dosage: QOW
     Route: 042
  11. VITAMIN D3 [Concomitant]
     Active Substance: CHOLECALCIFEROL
     Route: 048
  12. VITAMIN D3 [Concomitant]
     Active Substance: CHOLECALCIFEROL
     Dosage: 2000 IU
  13. ASPIRIN [Concomitant]
     Active Substance: ASPIRIN
     Dosage: UNK
     Route: 048
  14. PANAX GINSENG WHOLE [Concomitant]
     Active Substance: PANAX GINSENG WHOLE
     Route: 048
  15. CALCIUM [Concomitant]
     Active Substance: CALCIUM
     Route: 048
  16. NITROGLYCERIN [Concomitant]
     Active Substance: NITROGLYCERIN
     Dosage: UNK
  17. CETIRIZINE [Concomitant]
     Active Substance: CETIRIZINE HYDROCHLORIDE
     Indication: Premedication
     Dosage: UNK
     Route: 048
  18. ACETAMINOPHEN [Concomitant]
     Active Substance: ACETAMINOPHEN
     Indication: Premedication
     Route: 048
  19. LIPITOR [Concomitant]
     Active Substance: ATORVASTATIN CALCIUM
  20. ASPIRIN [Concomitant]
     Active Substance: ASPIRIN
  21. BISOPROLOL [Concomitant]
     Active Substance: BISOPROLOL
  22. VALSARTAN [Concomitant]
     Active Substance: VALSARTAN
     Indication: Cardiac failure congestive

REACTIONS (22)
  - Cardiac failure congestive [Not Recovered/Not Resolved]
  - Oedema peripheral [Not Recovered/Not Resolved]
  - Dyspnoea exertional [Recovered/Resolved]
  - Hypervolaemia [Recovered/Resolved]
  - Cardiac dysfunction [Not Recovered/Not Resolved]
  - Acute kidney injury [Recovering/Resolving]
  - Cardiomyopathy [Unknown]
  - Cardiogenic shock [Unknown]
  - Exercise tolerance decreased [Unknown]
  - Orthopnoea [Unknown]
  - Condition aggravated [Unknown]
  - Weight increased [Unknown]
  - Hypoperfusion [Unknown]
  - Hepatic enzyme increased [Unknown]
  - Heart rate abnormal [Unknown]
  - Gait disturbance [Unknown]
  - Blood lactic acid increased [Unknown]
  - Ejection fraction decreased [Unknown]
  - Left ventricular dysfunction [Unknown]
  - Fatigue [Unknown]
  - Dizziness [Unknown]
  - Abdominal pain [Unknown]

NARRATIVE: CASE EVENT DATE: 20250101
